FAERS Safety Report 6267219-9 (Version None)
Quarter: 2009Q3

REPORT INFORMATION
  Report Type: 
  Country: None (occurrence: None)
  Receive Date: 20090714
  Receipt Date: 20090626
  Transmission Date: 20100115
  Serious: No
  Sender: FDA-Public Use
  Company Number: US-B.I. PHARMACEUTICALS,INC./RIDGEFIELD-2009-BP-07190BP

PATIENT
  Sex: Male

DRUGS (5)
  1. FLOMAX [Suspect]
     Indication: BENIGN PROSTATIC HYPERPLASIA
     Dosage: 0.4 MG
     Route: 048
     Dates: start: 20070101
  2. ASPIRIN [Concomitant]
     Indication: PROPHYLAXIS
  3. AVODART [Concomitant]
     Indication: BENIGN PROSTATIC HYPERPLASIA
  4. COREG [Concomitant]
     Indication: CARDIAC DISORDER
  5. MAVIK [Concomitant]

REACTIONS (2)
  - SEMEN DISCOLOURATION [None]
  - SEMEN VOLUME DECREASED [None]
